FAERS Safety Report 24727549 (Version 4)
Quarter: 2024Q4

REPORT INFORMATION
  Report Type: Spontaneous
  Country: CN (occurrence: CN)
  Receive Date: 20241212
  Receipt Date: 20241230
  Transmission Date: 20250114
  Serious: Yes (Other)
  Sender: PFIZER
  Company Number: CN-PFIZER INC-PV202400162198

PATIENT
  Age: 56 Year
  Sex: Female
  Weight: 54 kg

DRUGS (2)
  1. IBRANCE [Suspect]
     Active Substance: PALBOCICLIB
     Indication: Breast cancer
     Dosage: 100.000 MG, 1X/DAY
     Route: 048
     Dates: start: 20241010, end: 20241031
  2. CEFIXIME [Suspect]
     Active Substance: CEFIXIME
     Indication: Breast cancer
     Dosage: 0.500 G, 1X/DAY
     Route: 030
     Dates: start: 20241010, end: 20241010

REACTIONS (1)
  - Myelosuppression [Recovering/Resolving]

NARRATIVE: CASE EVENT DATE: 20241107
